FAERS Safety Report 4503163-2 (Version None)
Quarter: 2004Q4

REPORT INFORMATION
  Report Type: 
  Country: None (occurrence: None)
  Receive Date: 20041112
  Receipt Date: 20041027
  Transmission Date: 20050328
  Serious: Yes (Other)
  Sender: FDA-Public Use
  Company Number: 2004IC000884

PATIENT
  Age: 46 Year
  Sex: Male

DRUGS (2)
  1. FLUOROURACIL [Suspect]
     Indication: OESOPHAGEAL CARCINOMA
     Dosage: 400 MG/M 2; INTRAVENOUS
     Route: 042
     Dates: start: 19950427, end: 19950825
  2. CISPLATIN [Suspect]
     Indication: OESOPHAGEAL CARCINOMA
     Dosage: 40 MG/M 2; INTRAVENOUS
     Route: 042
     Dates: start: 19950427, end: 19950825

REACTIONS (2)
  - NEUTROPENIC SEPSIS [None]
  - RENAL FAILURE [None]
